FAERS Safety Report 8052326-0 (Version None)
Quarter: 2012Q1

REPORT INFORMATION
  Report Type: 
  Country: None (occurrence: None)
  Receive Date: 20120117
  Receipt Date: 20120117
  Transmission Date: 20120608
  Serious: Yes (Hospitalization)
  Sender: FDA-Public Use
  Company Number: None

PATIENT
  Sex: Male

DRUGS (2)
  1. PEGASYS [Suspect]
     Dosage: 180MCG QWEEK SUBQ
     Route: 058
     Dates: start: 20110802
  2. VICTRELIS [Suspect]
     Dosage: 800MG TID PO
     Route: 048
     Dates: start: 20110828

REACTIONS (5)
  - ARRHYTHMIA [None]
  - SEPSIS [None]
  - INFECTION [None]
  - WHITE BLOOD CELL COUNT DECREASED [None]
  - PLATELET COUNT DECREASED [None]
